FAERS Safety Report 4314099-4 (Version None)
Quarter: 2004Q1

REPORT INFORMATION
  Report Type: 
  Country: None (occurrence: None)
  Receive Date: 20040308
  Receipt Date: 20040308
  Transmission Date: 20041129
  Serious: Yes (Death)
  Sender: FDA-Public Use
  Company Number: None

PATIENT
  Age: 40 Year
  Sex: Male
  Weight: 79.3795 kg

DRUGS (1)
  1. PROZAC [Suspect]
     Indication: DEPRESSION

REACTIONS (4)
  - ABNORMAL BEHAVIOUR [None]
  - COMPLETED SUICIDE [None]
  - DIVORCED [None]
  - GUN SHOT WOUND [None]
